FAERS Safety Report 10255451 (Version 1)
Quarter: 2014Q2

REPORT INFORMATION
  Report Type: Spontaneous
  Country: US (occurrence: US)
  Receive Date: 20140624
  Receipt Date: 20140624
  Transmission Date: 20141212
  Serious: Yes (Other)
  Sender: FDA-Public Use
  Company Number: CHPA2014US008388

PATIENT
  Age: 76 Year
  Sex: Female

DRUGS (7)
  1. VOLTAREN GEL [Suspect]
     Indication: ARTHRITIS
     Dosage: 2 G, QD
     Route: 061
  2. VOLTAREN GEL [Suspect]
     Indication: PAIN IN EXTREMITY
     Dosage: 2.5 G, QD
     Route: 061
  3. VOLTAREN GEL [Suspect]
     Indication: OFF LABEL USE
  4. VICODIN [Suspect]
     Indication: PAIN
     Dosage: UNK
     Route: 065
  5. FUROSEMIDE [Concomitant]
     Dosage: UNK
  6. LEVOTHYROXINE [Concomitant]
     Dosage: UNK
  7. CORTISONE [Concomitant]
     Dosage: UNK

REACTIONS (4)
  - Pain in extremity [Unknown]
  - Drug administered at inappropriate site [Unknown]
  - Wrong technique in drug usage process [Unknown]
  - Drug ineffective for unapproved indication [Unknown]
